FAERS Safety Report 6458831-2 (Version None)
Quarter: 2009Q4

REPORT INFORMATION
  Report Type: 
  Country: None (occurrence: None)
  Receive Date: 20091123
  Receipt Date: 20091113
  Transmission Date: 20100525
  Serious: Yes (Other)
  Sender: FDA-Public Use
  Company Number: CAP09000331

PATIENT
  Age: 76 Year
  Sex: Female

DRUGS (3)
  1. MACROBID [Suspect]
     Dosage: , ORAL
     Route: 048
  2. OMEPRAZOLE [Concomitant]
  3. CALCIUM + VITAMIN D (CALCIUM, COLECALCIFEROL) [Concomitant]

REACTIONS (3)
  - BLINDNESS TRANSIENT [None]
  - MIGRAINE WITH AURA [None]
  - VISUAL IMPAIRMENT [None]
